FAERS Safety Report 13738286 (Version 1)
Quarter: 2017Q3

REPORT INFORMATION
  Report Type: Spontaneous
  Country: FR (occurrence: FR)
  Receive Date: 20170710
  Receipt Date: 20170710
  Transmission Date: 20171127
  Serious: Yes (Hospitalization, Other)
  Sender: FDA-Public Use
  Company Number: FR-BAYER-2017-111540

PATIENT
  Age: 25 Year
  Sex: Female

DRUGS (1)
  1. YAZ [Suspect]
     Active Substance: DROSPIRENONE\ETHINYL ESTRADIOL
     Dosage: 1 DF, QD
     Route: 048
     Dates: start: 200909

REACTIONS (6)
  - Headache [None]
  - Haemorrhagic cerebral infarction [None]
  - Optic neuritis [None]
  - Confusional state [None]
  - Aphasia [None]
  - Transverse sinus thrombosis [None]

NARRATIVE: CASE EVENT DATE: 20110214
